FAERS Safety Report 8145387-1 (Version None)
Quarter: 2012Q1

REPORT INFORMATION
  Report Type: 
  Country: None (occurrence: None)
  Receive Date: 20120217
  Receipt Date: 20120206
  Transmission Date: 20120608
  Serious: Yes (Other)
  Sender: FDA-Public Use
  Company Number: JP-SANOFI-AVENTIS-2011SA070927

PATIENT
  Age: 59 Year
  Sex: Male
  Weight: 62.2 kg

DRUGS (13)
  1. TAXOTERE [Suspect]
     Indication: CHEMOTHERAPY
     Route: 042
     Dates: start: 20101122, end: 20101122
  2. FLUOROURACIL [Suspect]
     Indication: GINGIVAL CANCER
     Route: 042
     Dates: start: 20101122, end: 20101125
  3. ALOXI [Concomitant]
     Indication: ANTIEMETIC SUPPORTIVE CARE
     Dosage: DAILY DOSE:0.75
     Route: 042
     Dates: start: 20101122, end: 20101122
  4. DEXAMETHASONE SODIUM PHOSPHATE [Concomitant]
     Route: 042
     Dates: start: 20101122, end: 20101125
  5. CISPLATIN [Concomitant]
     Indication: METASTASIS
     Dates: start: 20101122
  6. FLUOROURACIL [Suspect]
     Indication: METASTASIS
     Route: 042
     Dates: start: 20101122, end: 20101125
  7. LASIX [Concomitant]
     Dosage: FREQUENCY:1 TO 3 TIMES PER DAY
     Route: 042
     Dates: start: 20101122, end: 20101122
  8. LANTUS [Suspect]
     Indication: CHEMOTHERAPY
     Route: 042
     Dates: start: 20101122, end: 20101122
  9. CISPLATIN [Concomitant]
     Indication: GINGIVAL CANCER
     Dates: start: 20101122
  10. FAMOTIDINE [Concomitant]
     Indication: PROPHYLAXIS
     Route: 042
     Dates: start: 20101122, end: 20101126
  11. TAXOTERE [Suspect]
     Indication: GINGIVAL CANCER
     Route: 042
     Dates: start: 20101122, end: 20101122
  12. MANNITOL [Concomitant]
     Dosage: STRENGTH:20%
     Route: 042
     Dates: start: 20101122, end: 20101122
  13. TAXOTERE [Suspect]
     Indication: METASTASIS
     Route: 042
     Dates: start: 20101122, end: 20101122

REACTIONS (8)
  - ELECTROCARDIOGRAM ST SEGMENT ELEVATION [None]
  - PULMONARY EMBOLISM [None]
  - ATRIAL FIBRILLATION [None]
  - TACHYCARDIA [None]
  - CHEST PAIN [None]
  - COLD SWEAT [None]
  - HYPERTENSION [None]
  - MALAISE [None]
